FAERS Safety Report 6384909-8 (Version None)
Quarter: 2009Q4

REPORT INFORMATION
  Report Type: 
  Country: None (occurrence: None)
  Receive Date: 20091002
  Receipt Date: 20090928
  Transmission Date: 20100525
  Serious: Yes (Hospitalization, Other)
  Sender: FDA-Public Use
  Company Number: US-TEVA-210482USA

PATIENT
  Age: 70 Year
  Sex: Male

DRUGS (11)
  1. DEXAMETHASONE SODIUM PHOSPHATE 4 MG/ML [Suspect]
  2. MELOXICAM [Suspect]
  3. PAMIDRONATE DISODIUM [Suspect]
  4. FLUCONAZOLE [Suspect]
  5. MORPHINE [Suspect]
  6. THALIDOMIDE [Suspect]
  7. VANCOMYCIN [Suspect]
  8. PARACETAMOL [Suspect]
  9. HEPARIN [Suspect]
  10. ENOXAPARIN SODIUM [Suspect]
  11. CEFEPIME [Suspect]

REACTIONS (1)
  - ACUTE GENERALISED EXANTHEMATOUS PUSTULOSIS [None]
